FAERS Safety Report 14091835 (Version 1)
Quarter: 2017Q4

REPORT INFORMATION
  Report Type: Spontaneous
  Country: US (occurrence: US)
  Receive Date: 20171013
  Receipt Date: 20171013
  Transmission Date: 20180321
  Serious: Yes (Disabling)
  Sender: FDA-Public Use
  Company Number: None

PATIENT
  Age: 65 Year
  Sex: Female
  Weight: 74.25 kg

DRUGS (8)
  1. BRIMONIDINE [Concomitant]
     Active Substance: BRIMONIDINE TARTRATE
  2. CALCIUM 600 PLUS D3 [Concomitant]
  3. ALENDRONATE SODIUM. [Suspect]
     Active Substance: ALENDRONATE SODIUM
     Indication: OSTEOPOROSIS PROPHYLAXIS
     Dosage: ?          QUANTITY:4 TABLET(S);OTHER FREQUENCY:ONCE WEEKLY;?ORAL
     Route: 048
     Dates: start: 20170808, end: 20170911
  4. BUSPIRONE [Concomitant]
     Active Substance: BUSPIRONE HYDROCHLORIDE
  5. OMEPRAZOLE. [Concomitant]
     Active Substance: OMEPRAZOLE
  6. METOPROLOL. [Concomitant]
     Active Substance: METOPROLOL
  7. CLONAZEPAM. [Concomitant]
     Active Substance: CLONAZEPAM
  8. OMEPRAZOLE. [Concomitant]
     Active Substance: OMEPRAZOLE

REACTIONS (4)
  - Pain in jaw [None]
  - Gingival swelling [None]
  - Sensitivity of teeth [None]
  - Gingival pain [None]

NARRATIVE: CASE EVENT DATE: 20170915
